FAERS Safety Report 24913366 (Version 1)
Quarter: 2025Q1

REPORT INFORMATION
  Report Type: Report from Study
  Country: PL (occurrence: PL)
  Receive Date: 20250201
  Receipt Date: 20250201
  Transmission Date: 20250408
  Serious: Yes (Other)
  Sender: ABBVIE
  Company Number: PL-JNJFOC-20250133424

PATIENT
  Age: 70 Year
  Sex: Male

DRUGS (2)
  1. VENETOCLAX [Suspect]
     Active Substance: VENETOCLAX
     Indication: Plasmablastic lymphoma
     Route: 048
  2. IMBRUVICA [Suspect]
     Active Substance: IBRUTINIB
     Indication: Plasmablastic lymphoma
     Route: 048

REACTIONS (2)
  - Leukocytosis [Recovered/Resolved]
  - Off label use [Unknown]
